FAERS Safety Report 6670784-0 (Version None)
Quarter: 2010Q2

REPORT INFORMATION
  Report Type: 
  Country: None (occurrence: None)
  Receive Date: 20100407
  Receipt Date: 20100407
  Transmission Date: 20101027
  Serious: Yes (Hospitalization)
  Sender: FDA-Public Use
  Company Number: PHHO2007PL08436

PATIENT
  Sex: Female
  Weight: 73 kg

DRUGS (6)
  1. ZOLEDRONIC ACID [Suspect]
     Indication: OSTEOPOROSIS POSTMENOPAUSAL
     Dosage: UNK
     Route: 042
     Dates: start: 20050920
  2. CALCIUM [Concomitant]
     Indication: OSTEOPOROSIS
  3. VITAMIN D3 [Concomitant]
     Indication: OSTEOPOROSIS
  4. ENARENAL [Concomitant]
     Indication: HYPERTENSION
     Dosage: 5 MG, BID
     Route: 048
     Dates: start: 20010101
  5. TERTENSIF - SLOW RELEASE [Concomitant]
     Indication: HYPERTENSION
     Dosage: 1.5 MG, QD
     Route: 048
     Dates: start: 20030506
  6. VINPOCETINE [Concomitant]
     Indication: VERTIGO
     Dosage: 5 MG, TID
     Route: 048
     Dates: start: 20040617

REACTIONS (3)
  - FALL [None]
  - HIP FRACTURE [None]
  - HIP SURGERY [None]
